FAERS Safety Report 5370485-5 (Version None)
Quarter: 2007Q2

REPORT INFORMATION
  Report Type: 
  Country: None (occurrence: None)
  Receive Date: 20070626
  Receipt Date: 20070330
  Transmission Date: 20071010
  Serious: No
  Sender: FDA-Public Use
  Company Number: US-AMGEN-KDL217475

PATIENT
  Sex: Female

DRUGS (6)
  1. NEULASTA [Suspect]
     Indication: CHEMOTHERAPY
     Dates: start: 20070323
  2. ARANESP [Suspect]
     Indication: ANAEMIA OF MALIGNANT DISEASE
     Dates: start: 20070101
  3. ACIPHEX [Concomitant]
  4. UNSPECIFIED GASTROINTESTINAL AGENT [Concomitant]
  5. CARBOPLATIN [Concomitant]
  6. TAXOL [Concomitant]

REACTIONS (3)
  - DEHYDRATION [None]
  - TINNITUS [None]
  - WHITE BLOOD CELL COUNT DECREASED [None]
